FAERS Safety Report 4422234-2 (Version None)
Quarter: 2004Q3

REPORT INFORMATION
  Report Type: 
  Country: None (occurrence: None)
  Receive Date: 20040810
  Receipt Date: 20030724
  Transmission Date: 20050211
  Serious: Yes (Other)
  Sender: FDA-Public Use
  Company Number: US-ROCHE-343358

PATIENT
  Age: 49 Year
  Sex: Male
  Weight: 81.6 kg

DRUGS (4)
  1. PEGASYS [Suspect]
     Indication: HEPATITIS C
     Route: 058
     Dates: start: 20030706, end: 20031215
  2. COPEGUS [Suspect]
     Indication: HEPATITIS C
     Route: 048
     Dates: start: 20030706, end: 20031215
  3. PRINIVIL [Concomitant]
     Indication: BLOOD PRESSURE INCREASED
     Route: 048
  4. TPN [Concomitant]
     Indication: MEDICAL DIET
     Dosage: DRUG REPORTED AS MILKTHISTEL
     Route: 048
     Dates: start: 20020615

REACTIONS (9)
  - CHEST DISCOMFORT [None]
  - COUGH [None]
  - FATIGUE [None]
  - PHARYNGOLARYNGEAL PAIN [None]
  - PLEURISY [None]
  - PYREXIA [None]
  - RHINORRHOEA [None]
  - SINUSITIS [None]
  - VIRAL LOAD INCREASED [None]
